FAERS Safety Report 7047233-6 (Version None)
Quarter: 2010Q4

REPORT INFORMATION
  Report Type: 
  Country: None (occurrence: None)
  Receive Date: 20101007
  Receipt Date: 20100928
  Transmission Date: 20110411
  Serious: Yes (Death)
  Sender: FDA-Public Use
  Company Number: 018752

PATIENT
  Age: 61 Year
  Sex: Male
  Weight: 98 kg

DRUGS (5)
  1. ROTIGOTINE (ROTIGOTINE) [Suspect]
     Indication: RESTLESS LEGS SYNDROME
     Dosage: TRANSDERMAL PATCH TRANSDERMAL
     Route: 062
     Dates: start: 20100805, end: 20100901
  2. AMLODIPIN /00972401/ (AMLODIPINE) [Concomitant]
  3. NEBIVOLOL HCL [Concomitant]
  4. GODAMED /00002701/ (ACETYLSALICYLIC ACID) [Concomitant]
  5. SERTRALIN /01011401/ (SERTRALINE) [Concomitant]

REACTIONS (2)
  - MYOCARDIAL INFARCTION [None]
  - SUDDEN DEATH [None]
